FAERS Safety Report 6802486-1 (Version None)
Quarter: 2010Q2

REPORT INFORMATION
  Report Type: 
  Country: None (occurrence: None)
  Receive Date: 20100628
  Receipt Date: 20100504
  Transmission Date: 20101027
  Serious: Yes (Hospitalization, Other)
  Sender: FDA-Public Use
  Company Number: US-BAYER-201021261NA

PATIENT
  Age: 20 Year
  Sex: Female
  Weight: 59 kg

DRUGS (15)
  1. YAZ [Suspect]
     Indication: DYSMENORRHOEA
     Route: 048
     Dates: start: 20060901, end: 20071208
  2. ZYRTEC [Concomitant]
     Dates: start: 20000101
  3. CLARITIN-D [Concomitant]
     Dates: start: 20000101
  4. FIORICET [Concomitant]
  5. PHENERGAN [Concomitant]
  6. AZITHROMYCIN [Concomitant]
  7. PROMETHAZINE [Concomitant]
  8. PREVACID [Concomitant]
  9. CARAFATE [Concomitant]
  10. ACYCLOVIR [Concomitant]
  11. LIDOCAINE HCL VISCOUS [Concomitant]
     Route: 048
  12. LEVAQUIN [Concomitant]
  13. NASONEX [Concomitant]
  14. PSEUDOVENT [Concomitant]
  15. PROMETHEGAN [Concomitant]

REACTIONS (5)
  - BACK PAIN [None]
  - CHEST PAIN [None]
  - DYSPNOEA [None]
  - MUSCULOSKELETAL PAIN [None]
  - PULMONARY EMBOLISM [None]
